FAERS Safety Report 25320160 (Version 2)
Quarter: 2025Q3

REPORT INFORMATION
  Report Type: Spontaneous
  Country: CN (occurrence: CN)
  Receive Date: 20250515
  Receipt Date: 20250703
  Transmission Date: 20251021
  Serious: Yes (Hospitalization)
  Sender: PFIZER
  Company Number: CN-PFIZER INC-PV202400056165

PATIENT
  Age: 26 Year
  Sex: Male

DRUGS (20)
  1. XYNTHA [Suspect]
     Active Substance: MOROCTOCOG ALFA
     Dates: start: 20230419
  2. XYNTHA [Suspect]
     Active Substance: MOROCTOCOG ALFA
     Dosage: 2000 IU, QD
     Route: 040
     Dates: start: 20230607
  3. XYNTHA [Suspect]
     Active Substance: MOROCTOCOG ALFA
     Dosage: 2000 IU, QD
     Route: 040
     Dates: start: 20230721
  4. XYNTHA [Suspect]
     Active Substance: MOROCTOCOG ALFA
     Dosage: 2000 IU, QD
     Route: 040
     Dates: start: 20230830
  5. XYNTHA [Suspect]
     Active Substance: MOROCTOCOG ALFA
     Dosage: 2000 IU, QD
     Route: 040
     Dates: start: 20231030
  6. XYNTHA [Suspect]
     Active Substance: MOROCTOCOG ALFA
     Dosage: 2000 IU, BID
     Route: 040
     Dates: start: 20231117
  7. XYNTHA [Suspect]
     Active Substance: MOROCTOCOG ALFA
     Dosage: 2000 IU, BID
     Route: 040
     Dates: start: 20231219
  8. XYNTHA [Suspect]
     Active Substance: MOROCTOCOG ALFA
     Dosage: 1000 IU, BID
     Route: 040
     Dates: start: 20240117
  9. XYNTHA [Suspect]
     Active Substance: MOROCTOCOG ALFA
     Dosage: 2000 IU, BID
     Route: 040
     Dates: start: 20240221
  10. XYNTHA [Suspect]
     Active Substance: MOROCTOCOG ALFA
     Dosage: 2000 IU, BID
     Route: 040
     Dates: start: 20240329
  11. XYNTHA [Suspect]
     Active Substance: MOROCTOCOG ALFA
     Dosage: 2250 IU, BID
     Route: 040
     Dates: start: 20240427
  12. XYNTHA [Suspect]
     Active Substance: MOROCTOCOG ALFA
     Dosage: 2000 IU, BID
     Route: 040
     Dates: start: 20240531
  13. XYNTHA [Suspect]
     Active Substance: MOROCTOCOG ALFA
     Dosage: 2000 IU, BID
     Route: 040
     Dates: start: 20240627
  14. XYNTHA [Suspect]
     Active Substance: MOROCTOCOG ALFA
     Dosage: 2000 IU, BID
     Route: 040
     Dates: start: 20240805
  15. XYNTHA [Suspect]
     Active Substance: MOROCTOCOG ALFA
     Dosage: 2000 IU, BID
     Route: 040
     Dates: start: 20240918
  16. XYNTHA [Suspect]
     Active Substance: MOROCTOCOG ALFA
     Dosage: 2000 IU, BID
     Route: 040
     Dates: start: 20241016
  17. XYNTHA [Suspect]
     Active Substance: MOROCTOCOG ALFA
     Dosage: 2000 IU, BID
     Route: 040
     Dates: start: 20241122
  18. XYNTHA [Suspect]
     Active Substance: MOROCTOCOG ALFA
     Dosage: 2000 IU, BID
     Route: 040
     Dates: start: 20241230
  19. XYNTHA [Suspect]
     Active Substance: MOROCTOCOG ALFA
     Dosage: 2000 IU, BID
     Route: 040
     Dates: start: 20250120
  20. XYNTHA [Suspect]
     Active Substance: MOROCTOCOG ALFA
     Dosage: 4000 IU, QD
     Route: 042
     Dates: start: 20250210

REACTIONS (3)
  - Arthralgia [Unknown]
  - Condition aggravated [Unknown]
  - Hypokinesia [Unknown]

NARRATIVE: CASE EVENT DATE: 20240101
